FAERS Safety Report 7200608-4 (Version None)
Quarter: 2010Q4

REPORT INFORMATION
  Report Type: 
  Country: None (occurrence: None)
  Receive Date: 20101228
  Receipt Date: 20101217
  Transmission Date: 20110411
  Serious: Yes (Death, Hospitalization, Other)
  Sender: FDA-Public Use
  Company Number: GB-JNJFOC-20070402765

PATIENT
  Sex: Male
  Weight: 86 kg

DRUGS (9)
  1. REMICADE [Suspect]
     Indication: ANKYLOSING SPONDYLITIS
     Route: 042
  2. REMICADE [Suspect]
     Route: 042
  3. METHOTREXATE [Concomitant]
  4. CO-CODAMOL [Concomitant]
  5. FOLIC ACID [Concomitant]
  6. HYDROXYCHLOROQUINE SULFATE [Concomitant]
  7. TAMULOSIN [Concomitant]
  8. SULPHADIAZINE [Concomitant]
  9. VOLTAREN [Concomitant]

REACTIONS (2)
  - ANKYLOSING SPONDYLITIS [None]
  - MULTIPLE MYELOMA [None]
